FAERS Safety Report 4325800-8 (Version None)
Quarter: 2004Q1

REPORT INFORMATION
  Report Type: 
  Country: None (occurrence: None)
  Receive Date: 20040324
  Receipt Date: 20040308
  Transmission Date: 20041129
  Serious: Yes (Other)
  Sender: FDA-Public Use
  Company Number: GBS040314568

PATIENT
  Age: 15 Year
  Sex: Male

DRUGS (1)
  1. PROZAC [Suspect]
     Indication: DEPRESSION

REACTIONS (8)
  - ABNORMAL BEHAVIOUR [None]
  - AGGRESSION [None]
  - ALCOHOL USE [None]
  - ANXIETY [None]
  - CONDITION AGGRAVATED [None]
  - INSOMNIA [None]
  - PHYSICAL ASSAULT [None]
  - TENSION [None]
